FAERS Safety Report 8695076 (Version 2)
Quarter: 2013Q4

REPORT INFORMATION
  Report Type: Spontaneous
  Country: PE (occurrence: US)
  Receive Date: 20120731
  Receipt Date: 20131101
  Transmission Date: 20140711
  Serious: Yes (Disabling)
  Sender: FDA-Public Use
  Company Number: PE-009507513-1207USA011992

PATIENT
  Sex: Male

DRUGS (1)
  1. PROPECIA [Suspect]
     Route: 048

REACTIONS (7)
  - Libido decreased [Unknown]
  - Male orgasmic disorder [Unknown]
  - Genital disorder male [Unknown]
  - Depression [Unknown]
  - Anxiety [Unknown]
  - Cognitive disorder [Unknown]
  - Erectile dysfunction [Unknown]
